FAERS Safety Report 19559040 (Version 4)
Quarter: 2021Q4

REPORT INFORMATION
  Report Type: Report from Study
  Country: DE (occurrence: DE)
  Receive Date: 20210716
  Receipt Date: 20211013
  Transmission Date: 20220303
  Serious: Yes (Other)
  Sender: FDA-Public Use
  Company Number: DE-SUN PHARMACEUTICAL INDUSTRIES LTD-2021RR-304561

PATIENT
  Age: 98 Year
  Sex: Male

DRUGS (11)
  1. SONIDEGIB [Suspect]
     Active Substance: SONIDEGIB
     Indication: Basal cell carcinoma
     Dosage: 200 MILLIGRAM, DAILY
     Route: 048
     Dates: start: 20210322, end: 20210620
  2. ASPIRIN [Concomitant]
     Active Substance: ASPIRIN
     Indication: Pre-existing disease
     Dosage: 100 MILLIGRAM, DAILY
     Route: 048
  3. ENALAPRIL [Concomitant]
     Active Substance: ENALAPRIL
     Indication: Pre-existing disease
     Dosage: 10 MILLIGRAM, DAILY
     Route: 048
  4. UNSPECIFIED INGREDIENT [Concomitant]
     Active Substance: UNSPECIFIED INGREDIENT
     Indication: Product used for unknown indication
     Dosage: UNK
     Route: 065
  5. FENTANYL [Concomitant]
     Active Substance: FENTANYL
     Indication: Pre-existing disease
     Dosage: 25 MICROGRAM, EVERY THREE DAYS
     Route: 065
  6. POTASSIUM CHLORIDE [Concomitant]
     Active Substance: POTASSIUM CHLORIDE
     Indication: Pre-existing disease
     Dosage: 600 MILLIGRAM, BID
     Route: 065
  7. LEVETIRACETAM [Concomitant]
     Active Substance: LEVETIRACETAM
     Indication: Pre-existing disease
     Dosage: 500 MILLIGRAM, BID
     Route: 065
  8. TORSEMIDE [Concomitant]
     Active Substance: TORSEMIDE
     Indication: Pre-existing disease
     Dosage: 10 MILLIGRAM, BID
     Route: 065
  9. VIMPAT [Concomitant]
     Active Substance: LACOSAMIDE
     Indication: Pre-existing disease
     Dosage: 100 MILLIGRAM, BID
     Route: 065
  10. VITAMIN B1 [Concomitant]
     Active Substance: THIAMINE HYDROCHLORIDE
     Indication: Pre-existing disease
     Dosage: 200 MILLIGRAM, DAILY
     Route: 065
  11. OMEPRAZOLE [Concomitant]
     Active Substance: OMEPRAZOLE
     Indication: Pre-existing disease
     Dosage: 20 MILLIGRAM, DAILY
     Route: 065

REACTIONS (1)
  - Acute kidney injury [Not Recovered/Not Resolved]

NARRATIVE: CASE EVENT DATE: 20210621
